FAERS Safety Report 21951115 (Version 1)
Quarter: 2023Q1

REPORT INFORMATION
  Report Type: Spontaneous
  Country: CN (occurrence: CN)
  Receive Date: 20230203
  Receipt Date: 20230203
  Transmission Date: 20230417
  Serious: Yes (Other)
  Sender: FDA-Public Use
  Company Number: CN-MLMSERVICE-20230113-4037687-1

PATIENT
  Age: 36 Year
  Sex: Male

DRUGS (4)
  1. GEMCITABINE HYDROCHLORIDE [Suspect]
     Active Substance: GEMCITABINE HYDROCHLORIDE
     Indication: Cholangiocarcinoma
     Dosage: 1000 MG/M2 ON DAYS 1 AND 8, THREE-WEEK CYCLES
     Route: 065
     Dates: start: 202112, end: 202204
  2. PACLITAXEL [Suspect]
     Active Substance: PACLITAXEL
     Indication: Cholangiocarcinoma
     Dosage: 125 MG/M2 ON DAYS 1 AND 8, THREE-WEEK CYCLES
     Route: 065
     Dates: start: 202112, end: 202204
  3. CAMRELIZUMAB [Suspect]
     Active Substance: CAMRELIZUMAB
     Indication: Cholangiocarcinoma
     Dosage: 200 MG CAMRELIZUMAB ON DAY 1, THREE-WEEK CYCLES
     Route: 065
     Dates: start: 202112, end: 202204
  4. CISPLATIN [Suspect]
     Active Substance: CISPLATIN
     Indication: Cholangiocarcinoma
     Dosage: 25 MG/M2 ON DAYS 1 AND 8, THREE-WEEK CYCLES
     Route: 065
     Dates: start: 202112, end: 202204

REACTIONS (1)
  - Liver injury [Unknown]
